FAERS Safety Report 13486341 (Version 2)
Quarter: 2017Q2

REPORT INFORMATION
  Report Type: Spontaneous
  Country: US (occurrence: US)
  Receive Date: 20170426
  Receipt Date: 20170426
  Transmission Date: 20170830
  Serious: Yes (Hospitalization)
  Sender: FDA-Public Use
  Company Number: US-VIFOR (INTERNATIONAL) INC.-VIT-2017-04429

PATIENT
  Age: 40 Year
  Sex: Male

DRUGS (7)
  1. COLECALCIFEROL [Concomitant]
     Active Substance: CHOLECALCIFEROL
  2. DOXYCYCLINE. [Concomitant]
     Active Substance: DOXYCYCLINE
  3. IRON [Concomitant]
     Active Substance: IRON
  4. ROBAXIN [Concomitant]
     Active Substance: METHOCARBAMOL
  5. VELTASSA [Suspect]
     Active Substance: PATIROMER
     Indication: HYPERKALAEMIA
     Route: 048
     Dates: start: 20160714
  6. FUROSEMIDE. [Concomitant]
     Active Substance: FUROSEMIDE
  7. GLIPIZIDE. [Concomitant]
     Active Substance: GLIPIZIDE

REACTIONS (3)
  - Blood pressure increased [Recovered/Resolved]
  - Drug dose omission [Unknown]
  - Fluid retention [Recovered/Resolved]

NARRATIVE: CASE EVENT DATE: 20170313
